FAERS Safety Report 21822612 (Version 1)
Quarter: 2023Q1

REPORT INFORMATION
  Report Type: Spontaneous
  Country: GB (occurrence: GB)
  Receive Date: 20230105
  Receipt Date: 20230105
  Transmission Date: 20230418
  Serious: Yes (Disabling, Other)
  Sender: FDA-Public Use
  Company Number: None

PATIENT
  Age: 55 Year
  Sex: Female
  Weight: 68 kg

DRUGS (7)
  1. CLOPIDOGREL [Suspect]
     Active Substance: CLOPIDOGREL BISULFATE
     Indication: Peripheral vascular disorder
     Route: 065
  2. AMOXICILLIN [Concomitant]
     Active Substance: AMOXICILLIN
     Indication: Product used for unknown indication
     Route: 065
     Dates: start: 20221201
  3. PALEXIA [Concomitant]
     Active Substance: TAPENTADOL HYDROCHLORIDE
     Indication: Product used for unknown indication
     Route: 065
     Dates: start: 20220620
  4. PREDNISOLONE [Concomitant]
     Active Substance: PREDNISOLONE
     Indication: Product used for unknown indication
     Dosage: IN THE MORNING FOR 3 DAYS AS PER SPECIALIST FOR FLARE UPS
     Route: 065
     Dates: start: 20221122
  5. VAGIRUX [Concomitant]
     Indication: Product used for unknown indication
     Dosage: ONCE DAILY FOR 2 WEEKS AND THEN TWICE WEEKLY FOR 6 MONTHS
     Route: 065
     Dates: start: 20220517
  6. VENTOLIN [Concomitant]
     Active Substance: ALBUTEROL SULFATE
     Indication: Product used for unknown indication
     Dosage: AS NECESSARY, 1 TO 2 PUFFS UP TO FOUR TIMES DAILY
     Route: 055
     Dates: start: 20220511
  7. ACETAMINOPHEN\CODEINE PHOSPHATE [Concomitant]
     Active Substance: ACETAMINOPHEN\CODEINE PHOSPHATE
     Indication: Product used for unknown indication
     Dosage: TAKE ONE OR TWO UP TO FOUR TIMES DAILY AS REQUIRED (MAX 8 IN 24 HOURS)
     Route: 065
     Dates: start: 20220526

REACTIONS (1)
  - Dyspnoea [Recovering/Resolving]

NARRATIVE: CASE EVENT DATE: 20220609
